FAERS Safety Report 7176668-6 (Version None)
Quarter: 2010Q4

REPORT INFORMATION
  Report Type: 
  Country: None (occurrence: None)
  Receive Date: 20101215
  Receipt Date: 20101215
  Transmission Date: 20110411
  Serious: No
  Sender: FDA-Public Use
  Company Number: None

PATIENT
  Age: 32 Year
  Sex: Female
  Weight: 71.6683 kg

DRUGS (2)
  1. PRISTIQ [Suspect]
     Indication: ANXIETY
     Dosage: 50MG ONCE A DAY PO
     Route: 048
     Dates: start: 20101119, end: 20101130
  2. PRISTIQ [Suspect]
     Indication: DEPRESSION
     Dosage: 50MG ONCE A DAY PO
     Route: 048
     Dates: start: 20101119, end: 20101130

REACTIONS (1)
  - RESTLESS LEGS SYNDROME [None]
